FAERS Safety Report 21945805 (Version 1)
Quarter: 2023Q1

REPORT INFORMATION
  Report Type: Spontaneous
  Country: US (occurrence: None)
  Receive Date: 20230202
  Receipt Date: 20230202
  Transmission Date: 20230418
  Serious: Yes (Hospitalization)
  Sender: FDA-Public Use
  Company Number: None

PATIENT
  Age: 29 Year
  Sex: Female
  Weight: 72.3 kg

DRUGS (3)
  1. CYTARABINE [Suspect]
     Active Substance: CYTARABINE
     Dates: end: 20230110
  2. METHOTREXATE [Suspect]
     Active Substance: METHOTREXATE
     Dates: end: 20230109
  3. PONATINIB [Suspect]
     Active Substance: PONATINIB
     Dates: end: 20230121

REACTIONS (7)
  - Cough [None]
  - Headache [None]
  - Oral pain [None]
  - Febrile neutropenia [None]
  - Tachycardia [None]
  - Pancytopenia [None]
  - Pulmonary mass [None]

NARRATIVE: CASE EVENT DATE: 20230122
